FAERS Safety Report 8972463 (Version 1)
Quarter: 2012Q4

REPORT INFORMATION
  Report Type: 
  Country: ZA (occurrence: ZA)
  Receive Date: 20121219
  Receipt Date: 20121219
  Transmission Date: 20130627
  Serious: Yes (Hospitalization)
  Sender: FDA-Public Use
  Company Number: ZA-PFIZER INC-2012304673

PATIENT
  Age: 25 Year
  Sex: Female

DRUGS (3)
  1. ZITHROMAX [Suspect]
     Indication: FLU LIKE SYMPTOMS
     Dosage: taking two of the 3 day course (two (1xdaily) of three (3 day course))
     Route: 048
     Dates: start: 20121030
  2. ZITHROMAX [Suspect]
     Indication: EARACHE
  3. BENADRYL [Concomitant]

REACTIONS (15)
  - Urticaria [Not Recovered/Not Resolved]
  - Dysphonia [Unknown]
  - Swelling face [Unknown]
  - Rash [Recovered/Resolved]
  - Auricular swelling [Not Recovered/Not Resolved]
  - Dizziness [Unknown]
  - Oedema peripheral [Unknown]
  - Chest pain [Recovered/Resolved]
  - Rash [Unknown]
  - Gastrooesophageal reflux disease [Unknown]
  - Fatigue [Unknown]
  - Pruritus [Not Recovered/Not Resolved]
  - Abdominal pain upper [Unknown]
  - Diarrhoea [Unknown]
  - Depression [Unknown]
